FAERS Safety Report 5204863-1 (Version None)
Quarter: 2007Q1

REPORT INFORMATION
  Report Type: 
  Country: None (occurrence: None)
  Receive Date: 20070110
  Receipt Date: 20060815
  Transmission Date: 20070707
  Serious: Yes (Hospitalization)
  Sender: FDA-Public Use
  Company Number: US-BRISTOL-MYERS SQUIBB COMPANY-13475090

PATIENT
  Age: 27 Year
  Sex: Male
  Weight: 59 kg

DRUGS (4)
  1. ABILIFY [Suspect]
     Indication: CONVULSION
  2. FELBATOL [Concomitant]
  3. LAMICTAL [Concomitant]
  4. LEXAPRO [Concomitant]

REACTIONS (5)
  - ABDOMINAL PAIN UPPER [None]
  - CONVULSION [None]
  - DIZZINESS [None]
  - NAUSEA [None]
  - VOMITING [None]
